FAERS Safety Report 9776283 (Version 1)
Quarter: 2013Q4

REPORT INFORMATION
  Report Type: Spontaneous
  Country: US (occurrence: US)
  Receive Date: 20131220
  Receipt Date: 20131220
  Transmission Date: 20140711
  Serious: Yes (Hospitalization)
  Sender: FDA-Public Use
  Company Number: US-MYLANLABS-2013S1027746

PATIENT
  Age: 80 Year
  Sex: Male

DRUGS (16)
  1. ALLOPURINOL [Suspect]
     Indication: GOUT
     Dosage: 300 MG/DAY
     Route: 048
  2. HYDROCHLOROTHIAZIDE W/TRIAMTERENE [Interacting]
     Indication: HYPERTENSION
     Dosage: DF = HYDROCHLOROTHIAZIDE 25MG + TRIAMTERENE 37.5MG
     Route: 048
  3. FLUTICASONE PROPIONATE [Concomitant]
     Dosage: 110 MCG DAILY
     Route: 055
  4. FLUTICASONE PROPIONATE [Concomitant]
     Dosage: 1 SPRAY IN BOTH NOSTRILS DAILY
     Route: 045
  5. MONTELUKAST [Concomitant]
     Dosage: 10MG DAILY
     Route: 048
  6. IRBESARTAN [Concomitant]
     Dosage: 300MG DAILY
     Route: 048
  7. AMLODIPINE [Concomitant]
     Dosage: 5MG DAILY
     Route: 048
  8. GLIBENCLAMIDE [Concomitant]
     Indication: TYPE 2 DIABETES MELLITUS
     Route: 048
  9. SALBUTAMOL [Concomitant]
     Dosage: DF = 90MCG PUFF; AS NEEDED
     Route: 055
  10. TERAZOSIN [Concomitant]
     Dosage: AT BEDTIME
     Route: 048
  11. SIMVASTATIN [Concomitant]
     Dosage: 40MG DAILY
     Route: 048
  12. AZELASTINE [Concomitant]
     Dosage: DF = 137MCG SPRAY (BOTH NOSTRILS)
     Route: 045
  13. MECLIZINE [Concomitant]
     Dosage: 25MG DAILY, AS NEEDED
     Route: 048
  14. FEXOFENADINE [Concomitant]
     Dosage: EVERY NIGHT
     Route: 048
  15. CYCLOBENZAPRINE [Concomitant]
     Dosage: AT BEDTIME; AS NEEDED
     Route: 048
  16. PROCET [Concomitant]
     Dosage: 2 TABLETS HYDROCODONE 5MG + PARACETAMOL 500MG DAILY; AS NEEDED
     Route: 048

REACTIONS (18)
  - Drug reaction with eosinophilia and systemic symptoms [Recovering/Resolving]
  - Drug interaction [Recovering/Resolving]
  - Cerebrovascular accident [Unknown]
  - Diarrhoea [None]
  - Dehydration [None]
  - Wheezing [None]
  - Dysgeusia [None]
  - Chills [None]
  - Dysuria [None]
  - Decreased appetite [None]
  - Nausea [None]
  - Hypophagia [None]
  - Hepatitis [None]
  - Renal failure acute [None]
  - Vasculitis [None]
  - Respiratory distress [None]
  - Respiratory arrest [None]
  - Shock [None]
